FAERS Safety Report 8862919 (Version 3)
Quarter: 2012Q4

REPORT INFORMATION
  Report Type: 
  Country: CN (occurrence: CN)
  Receive Date: 20121026
  Receipt Date: 20121205
  Transmission Date: 20130627
  Serious: Yes (Other)
  Sender: FDA-Public Use
  Company Number: CN-JNJFOC-20121012243

PATIENT
  Age: 16 Month
  Sex: Female
  Weight: 9.5 kg

DRUGS (5)
  1. CHILDREN^S MOTRIN [Suspect]
     Route: 048
  2. CHILDREN^S MOTRIN [Suspect]
     Indication: PYREXIA
     Dosage: 15 mL/0.6 g
     Route: 048
     Dates: start: 20121018, end: 20121018
  3. INFANT^S TYLENOL [Suspect]
     Indication: PYREXIA
     Dosage: 0.9 ml, 4 times
     Route: 048
     Dates: start: 20121018, end: 20121020
  4. CHINESE MEDICATION [Suspect]
     Indication: PYREXIA
     Route: 048
     Dates: start: 20121018, end: 20121020
  5. AN UNKNOWN MEDICATION [Suspect]
     Indication: PYREXIA
     Route: 030
     Dates: start: 20121018

REACTIONS (2)
  - Hypersensitivity [Recovered/Resolved]
  - Rash [Recovered/Resolved]
